FAERS Safety Report 8816088 (Version 1)
Quarter: 2012Q4

REPORT INFORMATION
  Report Type: 
  Country: US (occurrence: US)
  Receive Date: 20120928
  Receipt Date: 20120928
  Transmission Date: 20130627
  Serious: Yes (Other)
  Sender: FDA-Public Use
  Company Number: US-PFIZER INC-2012240476

PATIENT
  Age: 57 Year
  Sex: Female
  Weight: 89.8 kg

DRUGS (2)
  1. LYRICA [Suspect]
     Indication: PROCEDURAL PAIN
     Dosage: 50 mg, 3x/day
     Dates: start: 20120830, end: 20120916
  2. ZOCOR [Concomitant]
     Indication: BLOOD CHOLESTEROL INCREASED
     Dosage: 40 mg, daily

REACTIONS (7)
  - Dysentery [Not Recovered/Not Resolved]
  - Rash generalised [Recovered/Resolved]
  - Hypophagia [Not Recovered/Not Resolved]
  - Pruritus [Not Recovered/Not Resolved]
  - Cold sweat [Not Recovered/Not Resolved]
  - Parosmia [Not Recovered/Not Resolved]
  - Nausea [Not Recovered/Not Resolved]
